FAERS Safety Report 13164365 (Version 7)
Quarter: 2017Q3

REPORT INFORMATION
  Report Type: Spontaneous
  Country: KR (occurrence: KR)
  Receive Date: 20170130
  Receipt Date: 20170913
  Transmission Date: 20171127
  Serious: Yes (Hospitalization)
  Sender: FDA-Public Use
  Company Number: KR-009507513-1701KOR012292

PATIENT
  Age: 61 Year
  Sex: Female
  Weight: 55.6 kg

DRUGS (29)
  1. ENDOXAN [Concomitant]
     Active Substance: CYCLOPHOSPHAMIDE
     Dosage: CYCLE 2, 749 MG, ONCE
     Route: 042
     Dates: start: 20161013, end: 20161013
  2. DEXAMETHASONE SODIUM PHOSPHATE. [Concomitant]
     Active Substance: DEXAMETHASONE SODIUM PHOSPHATE
     Dosage: 10 MG, ONCE
     Route: 042
     Dates: start: 20161112, end: 20161112
  3. LEVOMELS [Concomitant]
     Indication: PROPHYLAXIS
     Dosage: 1 G, ONCE; STRENGTH 500MG/5ML
     Route: 042
     Dates: start: 20161202, end: 20161202
  4. MESULID [Concomitant]
     Active Substance: NIMESULIDE
     Indication: PAIN PROPHYLAXIS
     Dosage: 1 DF, BID
     Route: 048
     Dates: start: 20161014
  5. EMEND (FOSAPREPITANT DIMEGLUMINE) [Suspect]
     Active Substance: FOSAPREPITANT DIMEGLUMINE
     Dosage: 150 MG, ONCE
     Route: 042
     Dates: start: 20161202, end: 20161202
  6. ILDONG ADRIAMYCIN PFS [Concomitant]
     Indication: BREAST CANCER FEMALE
     Dosage: CYCLE 2, 74.9 MG, ONCE
     Route: 042
     Dates: start: 20161013, end: 20161013
  7. CURAN [Concomitant]
     Active Substance: RANITIDINE HYDROCHLORIDE
     Indication: DYSPEPSIA
     Dosage: 1 TABLET (75 MG), BID
     Route: 048
     Dates: start: 20161014
  8. MACPERAN [Concomitant]
     Active Substance: METOCLOPRAMIDE HYDROCHLORIDE
     Indication: DYSPEPSIA
     Dosage: 1 TABLET, TID
     Route: 048
     Dates: start: 20161014
  9. APETROL (MEGESTROL ACETATE) [Concomitant]
     Indication: PROPHYLAXIS
     Dosage: 650 MG, ONCE
     Route: 048
     Dates: start: 20161014
  10. DEXAMETHASONE SODIUM PHOSPHATE. [Concomitant]
     Active Substance: DEXAMETHASONE SODIUM PHOSPHATE
     Dosage: 12 MG, ONCE
     Route: 042
     Dates: start: 20161202, end: 20161202
  11. DEXAMETHASONE SODIUM PHOSPHATE. [Concomitant]
     Active Substance: DEXAMETHASONE SODIUM PHOSPHATE
     Dosage: 8 MG, ONCE
     Route: 042
     Dates: start: 20161203, end: 20161203
  12. ALLPAIN [Concomitant]
     Indication: PAIN PROPHYLAXIS
     Dosage: 1 CAPSULE, TID
     Route: 048
     Dates: start: 20161014
  13. ENDOXAN [Concomitant]
     Active Substance: CYCLOPHOSPHAMIDE
     Indication: BREAST CANCER FEMALE
     Dosage: CYCLE 4, 754 MG, ONCE
     Route: 042
     Dates: start: 20161202, end: 20161202
  14. ILDONG ADRIAMYCIN PFS [Concomitant]
     Dosage: CYCLE 3, 74.9 MG, ONCE
     Route: 042
     Dates: start: 20161111, end: 20161111
  15. ILDONG ADRIAMYCIN PFS [Concomitant]
     Dosage: CYCLE 4, 75.4 MG, ONCE; CYCLE 4
     Route: 042
     Dates: start: 20161202, end: 20161202
  16. ENDOXAN [Concomitant]
     Active Substance: CYCLOPHOSPHAMIDE
     Dosage: CYCLE 3, 749 MG, ONCE
     Route: 042
     Dates: start: 20161111, end: 20161111
  17. DEXAMETHASONE SODIUM PHOSPHATE. [Concomitant]
     Active Substance: DEXAMETHASONE SODIUM PHOSPHATE
     Dosage: 8 MG, ONCE
     Route: 042
     Dates: start: 20161014, end: 20161014
  18. ALOXI [Concomitant]
     Active Substance: PALONOSETRON HYDROCHLORIDE
     Indication: PROPHYLAXIS OF NAUSEA AND VOMITING
     Dosage: 0.25 MG, ONCE
     Route: 042
     Dates: start: 20161202, end: 20161202
  19. SANCUSO [Concomitant]
     Active Substance: GRANISETRON
     Indication: PROPHYLAXIS OF NAUSEA AND VOMITING
     Dosage: STRENGHT 80.2X66.6 MM2; ROUTE: EXTERNAL USE; 1 PATCH, ONCE
     Dates: start: 20161202, end: 20161202
  20. NORZYME [Concomitant]
     Indication: DYSPEPSIA
     Dosage: 1 CAPSULE, TID
     Route: 048
     Dates: start: 20161014
  21. EMEND (FOSAPREPITANT DIMEGLUMINE) [Suspect]
     Active Substance: FOSAPREPITANT DIMEGLUMINE
     Indication: PROPHYLAXIS OF NAUSEA AND VOMITING
     Dosage: 150 MG, ONCE
     Route: 042
     Dates: start: 20161013, end: 20161013
  22. DEXAMETHASONE SODIUM PHOSPHATE. [Concomitant]
     Active Substance: DEXAMETHASONE SODIUM PHOSPHATE
     Indication: PROPHYLAXIS OF NAUSEA AND VOMITING
     Dosage: 12 MG, ONCE
     Route: 042
     Dates: start: 20161013, end: 20161013
  23. DEXAMETHASONE SODIUM PHOSPHATE. [Concomitant]
     Active Substance: DEXAMETHASONE SODIUM PHOSPHATE
     Dosage: 12 MG, ONCE
     Route: 042
     Dates: start: 20161111, end: 20161111
  24. ANTIS [Concomitant]
     Indication: PROPHYLAXIS
     Dosage: 10 ML, ONCE; ROUTE GARGLE
     Dates: start: 20161122, end: 20161122
  25. UROMITEXAN [Concomitant]
     Active Substance: MESNA
     Indication: PROPHYLAXIS
     Dosage: 400 MG, ONCE
     Route: 042
     Dates: start: 20161202, end: 20161202
  26. EMEND (FOSAPREPITANT DIMEGLUMINE) [Suspect]
     Active Substance: FOSAPREPITANT DIMEGLUMINE
     Dosage: 150 MG, ONCE
     Route: 042
     Dates: start: 20161111, end: 20161111
  27. DEXAMETHASONE SODIUM PHOSPHATE. [Concomitant]
     Active Substance: DEXAMETHASONE SODIUM PHOSPHATE
     Dosage: 10 MG, ONCE
     Route: 042
     Dates: start: 20161204, end: 20161204
  28. ALOXI [Concomitant]
     Active Substance: PALONOSETRON HYDROCHLORIDE
     Dosage: 0.25 MG, ONCE
     Route: 042
     Dates: start: 20161013, end: 20161013
  29. ALOXI [Concomitant]
     Active Substance: PALONOSETRON HYDROCHLORIDE
     Dosage: 0.25 MG, ONCE
     Route: 042
     Dates: start: 20161111, end: 20161111

REACTIONS (3)
  - Dyspepsia [Unknown]
  - Tremor [Recovered/Resolved]
  - Vision blurred [Recovered/Resolved]

NARRATIVE: CASE EVENT DATE: 20161202
